FAERS Safety Report 6434310-3 (Version None)
Quarter: 2009Q4

REPORT INFORMATION
  Report Type: 
  Country: None (occurrence: None)
  Receive Date: 20091110
  Receipt Date: 20091106
  Transmission Date: 20100525
  Serious: Yes (Life-Threatening, Hospitalization)
  Sender: FDA-Public Use
  Company Number: DE-ASTRAZENECA-2009SE24785

PATIENT
  Age: 27 Year
  Sex: Female

DRUGS (10)
  1. SEROQUEL [Suspect]
     Route: 048
     Dates: start: 20090621, end: 20090621
  2. SEROQUEL [Suspect]
     Route: 048
     Dates: start: 20090622, end: 20090622
  3. SEROQUEL [Suspect]
     Route: 048
     Dates: start: 20090626, end: 20090627
  4. SEROQUEL [Suspect]
     Route: 048
     Dates: start: 20090628, end: 20090630
  5. SEROQUEL [Suspect]
     Route: 048
     Dates: start: 20090701, end: 20090706
  6. SEROQUEL [Suspect]
     Route: 048
     Dates: start: 20090707, end: 20090709
  7. SEROQUEL [Suspect]
     Route: 048
     Dates: start: 20090710, end: 20090710
  8. SEROQUEL [Suspect]
     Route: 048
     Dates: start: 20090711, end: 20090714
  9. SEROQUEL [Suspect]
     Route: 048
     Dates: start: 20090715, end: 20090715
  10. DIAZEPAM [Concomitant]
     Dosage: AS NEEDED
     Dates: start: 20090621

REACTIONS (6)
  - HYPOKALAEMIA [None]
  - HYPONATRAEMIA [None]
  - POLYDIPSIA PSYCHOGENIC [None]
  - RESPIRATORY TRACT INFECTION [None]
  - SCHIZOAFFECTIVE DISORDER [None]
  - SOMNOLENCE [None]
